FAERS Safety Report 7879690-7 (Version None)
Quarter: 2011Q4

REPORT INFORMATION
  Report Type: 
  Country: None (occurrence: None)
  Receive Date: 20111101
  Receipt Date: 20110831
  Transmission Date: 20120403
  Serious: No
  Sender: FDA-Public Use
  Company Number: US-ABBOTT-11P-163-0851300-00

PATIENT
  Sex: Male
  Weight: 63.56 kg

DRUGS (5)
  1. TYLENOL-500 [Concomitant]
  2. NSAID [Concomitant]
  3. NSAID [Concomitant]
     Indication: PAIN
  4. BIAXIN [Suspect]
     Indication: SINUSITIS
     Dates: start: 20110826
  5. TYLENOL-500 [Concomitant]
     Indication: PAIN

REACTIONS (2)
  - HEADACHE [None]
  - MUSCULAR WEAKNESS [None]
